FAERS Safety Report 4794416-1 (Version None)
Quarter: 2005Q4

REPORT INFORMATION
  Report Type: 
  Country: None (occurrence: None)
  Receive Date: 20051011
  Receipt Date: 20050919
  Transmission Date: 20060501
  Serious: Yes (Hospitalization)
  Sender: FDA-Public Use
  Company Number: SE-ROCHE-418344

PATIENT
  Age: 35 Year
  Sex: Male

DRUGS (11)
  1. CYMEVENE [Suspect]
     Indication: DRUG USE FOR UNKNOWN INDICATION
     Dosage: GIVEN 4 TIMES
     Route: 042
     Dates: start: 20050914, end: 20050916
  2. URSO FALK [Concomitant]
     Route: 065
  3. SOLU-MEDROL [Concomitant]
     Dosage: POWDER AND SOLVENT FOR SOLUTION FOR INJECTION
     Route: 065
  4. CALCIUM-SANDOZ [Concomitant]
  5. PRECORTALON [Concomitant]
     Dosage: TRADE NAME = PRECORTALON AQUOSUM
  6. DICLOCIL [Concomitant]
     Route: 065
  7. SANDIMMUNE [Concomitant]
     Route: 065
  8. DIFLUCAN [Concomitant]
     Route: 065
  9. LOSEC [Concomitant]
     Dosage: POWDER FOR SOLUTION FOR INFUSION
     Route: 065
  10. ACETYLCYSTEINE [Concomitant]
     Route: 065
  11. NAVOBAN [Concomitant]
     Route: 065

REACTIONS (3)
  - HYPERBILIRUBINAEMIA [None]
  - RENAL FAILURE [None]
  - THROMBOTIC THROMBOCYTOPENIC PURPURA [None]
